FAERS Safety Report 7797185-6 (Version None)
Quarter: 2011Q4

REPORT INFORMATION
  Report Type: 
  Country: None (occurrence: None)
  Receive Date: 20111005
  Receipt Date: 20110923
  Transmission Date: 20120403
  Serious: No
  Sender: FDA-Public Use
  Company Number: PHEH2011US04946

PATIENT

DRUGS (2)
  1. TASIGNA [Suspect]
     Dosage: UNK UKN, UNK
  2. PROZAC [Concomitant]
     Dosage: UNK UKN, UNK

REACTIONS (1)
  - MOOD ALTERED [None]
